FAERS Safety Report 9548939 (Version 1)
Quarter: 2013Q3

REPORT INFORMATION
  Report Type: Spontaneous
  Country: US (occurrence: None)
  Receive Date: 20130923
  Receipt Date: 20130923
  Transmission Date: 20140515
  Serious: Yes (Other)
  Sender: FDA-Public Use
  Company Number: None

PATIENT
  Age: 39 Year
  Sex: 0

DRUGS (1)
  1. LAMICTAL [Suspect]
     Indication: AFFECTIVE DISORDER
     Dosage: 200 MG TAPER DOWN?
     Dates: start: 20120801, end: 20130921

REACTIONS (3)
  - Influenza like illness [None]
  - Fatigue [None]
  - Withdrawal syndrome [None]
